FAERS Safety Report 17566905 (Version 1)
Quarter: 2020Q1

REPORT INFORMATION
  Report Type: Spontaneous
  Country: GB (occurrence: GB)
  Receive Date: 20200320
  Receipt Date: 20200320
  Transmission Date: 20200409
  Serious: Yes (Other)
  Sender: FDA-Public Use
  Company Number: GB-MYLANLABS-2020M1030146

PATIENT
  Age: 86 Year
  Sex: Female

DRUGS (2)
  1. ALENDRONATE [Suspect]
     Active Substance: ALENDRONATE SODIUM
     Indication: FEMORAL NECK FRACTURE
     Dosage: 70 MILLIGRAM
     Route: 048
     Dates: start: 20190903, end: 20190912
  2. RIVAROXABAN [Suspect]
     Active Substance: RIVAROXABAN
     Indication: FEMORAL NECK FRACTURE
     Dosage: 10 MILLIGRAM
     Route: 048
     Dates: start: 20190903

REACTIONS (6)
  - Faeces discoloured [Unknown]
  - Abdominal discomfort [Unknown]
  - Rectal haemorrhage [Unknown]
  - Vomiting [Unknown]
  - Eructation [Unknown]
  - Product administration error [Unknown]

NARRATIVE: CASE EVENT DATE: 20190910
